FAERS Safety Report 24743848 (Version 1)
Quarter: 2024Q4

REPORT INFORMATION
  Report Type: Spontaneous
  Country: US (occurrence: US)
  Receive Date: 20241217
  Receipt Date: 20241217
  Transmission Date: 20250115
  Serious: No
  Sender: PFIZER
  Company Number: US-PFIZER INC-202400323299

PATIENT
  Sex: Female

DRUGS (1)
  1. RITLECITINIB [Suspect]
     Active Substance: RITLECITINIB
     Indication: Lichen planopilaris
     Dosage: 50 MG, 1X/DAY

REACTIONS (2)
  - Therapeutic response unexpected [Unknown]
  - Off label use [Unknown]
